FAERS Safety Report 14038574 (Version 4)
Quarter: 2019Q2

REPORT INFORMATION
  Report Type: Report from Study
  Country: US (occurrence: US)
  Receive Date: 20171004
  Receipt Date: 20190528
  Transmission Date: 20190711
  Serious: Yes (Hospitalization)
  Sender: FDA-Public Use
  Company Number: US-JNJFOC-20170826919

PATIENT
  Age: 72 Year
  Sex: Female

DRUGS (39)
  1. TRAMADOL. [Concomitant]
     Active Substance: TRAMADOL
  2. PRAVACHOL [Concomitant]
     Active Substance: PRAVASTATIN SODIUM
  3. BUDESONIDE. [Concomitant]
     Active Substance: BUDESONIDE
  4. LASIX [Concomitant]
     Active Substance: FUROSEMIDE
  5. VITAMIN D3 [Concomitant]
     Active Substance: CHOLECALCIFEROL
  6. IMBRUVICA [Suspect]
     Active Substance: IBRUTINIB
     Indication: CHRONIC LYMPHOCYTIC LEUKAEMIA
     Dosage: 280 MG, QD
     Route: 048
     Dates: start: 20170508, end: 2017
  7. NORCO [Concomitant]
     Active Substance: ACETAMINOPHEN\HYDROCODONE BITARTRATE
  8. LANTUS [Concomitant]
     Active Substance: INSULIN GLARGINE
  9. CALCIUM [Concomitant]
     Active Substance: CALCIUM
  10. AVASTIN [Concomitant]
     Active Substance: BEVACIZUMAB
  11. ATORVASTATIN [Concomitant]
     Active Substance: ATORVASTATIN
  12. ASCORBIC ACID. [Concomitant]
     Active Substance: ASCORBIC ACID
  13. BENADRYL [Concomitant]
     Active Substance: DIPHENHYDRAMINE HYDROCHLORIDE
     Route: 065
  14. SIMVASTATIN. [Concomitant]
     Active Substance: SIMVASTATIN
  15. GLIMEPIRIDE. [Concomitant]
     Active Substance: GLIMEPIRIDE
  16. LISINOPRIL. [Concomitant]
     Active Substance: LISINOPRIL
  17. HCTZ [Concomitant]
     Active Substance: HYDROCHLOROTHIAZIDE
  18. IMBRUVICA [Suspect]
     Active Substance: IBRUTINIB
     Indication: CHRONIC LYMPHOCYTIC LEUKAEMIA
     Route: 048
     Dates: start: 20170503, end: 20170917
  19. SYNTHROID [Concomitant]
     Active Substance: LEVOTHYROXINE SODIUM
  20. ZOFRAN [Concomitant]
     Active Substance: ONDANSETRON HYDROCHLORIDE
  21. ADVAIR HFA [Concomitant]
     Active Substance: FLUTICASONE PROPIONATE\SALMETEROL XINAFOATE
  22. ACETAMINOPHEN. [Concomitant]
     Active Substance: ACETAMINOPHEN
  23. IMBRUVICA [Suspect]
     Active Substance: IBRUTINIB
     Indication: CHRONIC LYMPHOCYTIC LEUKAEMIA
     Route: 048
     Dates: start: 20170509, end: 20180309
  24. PROCHLORPERAZINE. [Concomitant]
     Active Substance: PROCHLORPERAZINE
  25. TOPROL XL [Concomitant]
     Active Substance: METOPROLOL SUCCINATE
  26. LOSARTAN. [Concomitant]
     Active Substance: LOSARTAN
  27. GLUCOVANCE [Concomitant]
     Active Substance: GLYBURIDE\METFORMIN HYDROCHLORIDE
  28. TYLENOL [Concomitant]
     Active Substance: ACETAMINOPHEN
  29. KLOR-CON [Concomitant]
     Active Substance: POTASSIUM CHLORIDE
  30. CALCIUM CARBONATE AND VITAMIN D [Concomitant]
     Active Substance: CALCIUM CARBONATE\VITAMIN D
  31. ACYCLOVIR. [Concomitant]
     Active Substance: ACYCLOVIR
  32. IMBRUVICA [Suspect]
     Active Substance: IBRUTINIB
     Indication: CHRONIC LYMPHOCYTIC LEUKAEMIA
     Route: 048
     Dates: start: 20160627
  33. PRILOSEC [Concomitant]
     Active Substance: OMEPRAZOLE MAGNESIUM
  34. ALBUTEROL. [Concomitant]
     Active Substance: ALBUTEROL
  35. MULTIVITAMINS [Concomitant]
     Active Substance: VITAMINS
  36. IMBRUVICA [Suspect]
     Active Substance: IBRUTINIB
     Indication: CHRONIC LYMPHOCYTIC LEUKAEMIA
     Route: 048
     Dates: start: 20170509
  37. VITAMIN D [Concomitant]
     Active Substance: VITAMIN D NOS
  38. NOVOLOG [Concomitant]
     Active Substance: INSULIN ASPART
  39. LISINOPRIL AND HYDROCHLOROTHIAZIDE [Concomitant]
     Active Substance: HYDROCHLOROTHIAZIDE\LISINOPRIL

REACTIONS (9)
  - Hypertension [Unknown]
  - Stomatitis [Unknown]
  - Bundle branch block right [Unknown]
  - Pyrexia [Unknown]
  - Spinal pain [Unknown]
  - Drug hypersensitivity [Unknown]
  - Muscle spasms [Unknown]
  - Adverse drug reaction [Unknown]
  - Palpitations [Unknown]

NARRATIVE: CASE EVENT DATE: 2017
